FAERS Safety Report 9337259 (Version 1)
Quarter: 2013Q2

REPORT INFORMATION
  Report Type: Spontaneous
  Country: FR (occurrence: FR)
  Receive Date: 20130607
  Receipt Date: 20130607
  Transmission Date: 20140414
  Serious: Yes (Hospitalization)
  Sender: FDA-Public Use
  Company Number: FR-JNJFOC-20130602358

PATIENT
  Age: 84 Year
  Sex: Male

DRUGS (17)
  1. ZYRTEC [Suspect]
     Route: 048
  2. ZYRTEC [Suspect]
     Indication: PRODUCT USED FOR UNKNOWN INDICATION
     Route: 048
  3. AUGMENTIN [Suspect]
     Indication: BRONCHITIS
     Route: 048
     Dates: start: 20130111, end: 20130121
  4. PLAVIX [Suspect]
     Indication: BRONCHITIS
     Route: 048
     Dates: start: 20130111, end: 20130121
  5. AZITHROMYCIN [Suspect]
     Indication: SUPERINFECTION
     Route: 048
     Dates: start: 20130104, end: 20130109
  6. ISOPTINE [Suspect]
     Indication: PRODUCT USED FOR UNKNOWN INDICATION
     Route: 048
  7. ENALAPRIL MALEATE [Suspect]
     Indication: HYPERTENSION
     Route: 048
     Dates: start: 20121112
  8. TAHOR [Suspect]
     Indication: PRODUCT USED FOR UNKNOWN INDICATION
     Route: 048
  9. VENTOLIN [Concomitant]
     Route: 065
  10. FORADIL [Concomitant]
     Route: 065
  11. BECOTIDE [Concomitant]
     Route: 065
  12. EUPHYLLINE [Concomitant]
     Route: 065
  13. PREDNISONE [Concomitant]
  14. KARDEGIC [Concomitant]
     Route: 065
  15. RHINOCORT [Concomitant]
     Route: 065
  16. INEXIUM [Concomitant]
     Route: 065
  17. GAVISCON (SODIUM ALGINATE, SODIUM BICARBONATE) [Concomitant]
     Route: 065

REACTIONS (4)
  - Drug-induced liver injury [Recovered/Resolved]
  - Hepatocellular injury [Recovered/Resolved]
  - Cholestasis [Recovered/Resolved]
  - Jaundice [Recovered/Resolved]
